FAERS Safety Report 4925931-5 (Version None)
Quarter: 2006Q1

REPORT INFORMATION
  Report Type: 
  Country: None (occurrence: None)
  Receive Date: 20060228
  Receipt Date: 20050418
  Transmission Date: 20060701
  Serious: No
  Sender: FDA-Public Use
  Company Number: US-GLAXOSMITHKLINE-A0554499A

PATIENT
  Sex: Female

DRUGS (1)
  1. LAMICTAL [Suspect]
     Indication: BIPOLAR DISORDER
     Dosage: 100MG PER DAY
     Route: 048

REACTIONS (6)
  - EMOTIONAL DISTRESS [None]
  - HYPOAESTHESIA [None]
  - HYPOAESTHESIA ORAL [None]
  - PARAESTHESIA [None]
  - PERFORMANCE STATUS DECREASED [None]
  - SPEECH DISORDER [None]
